FAERS Safety Report 6088152-1 (Version None)
Quarter: 2009Q1

REPORT INFORMATION
  Report Type: 
  Country: None (occurrence: None)
  Receive Date: 20090224
  Receipt Date: 20090211
  Transmission Date: 20090719
  Serious: Yes (Other)
  Sender: FDA-Public Use
  Company Number: PHHY2009IE05219

PATIENT
  Sex: Female

DRUGS (1)
  1. CLOZARIL [Suspect]
     Indication: SCHIZOPHRENIA
     Dosage: 100 MG IN MORNING, 412 MG? AT NIGHT
     Dates: start: 20081229

REACTIONS (6)
  - DELUSIONAL DISORDER, PERSECUTORY TYPE [None]
  - ELECTROCARDIOGRAM CHANGE [None]
  - ELECTROCARDIOGRAM T WAVE ABNORMAL [None]
  - INCREASED APPETITE [None]
  - SALIVARY HYPERSECRETION [None]
  - VENTRICULAR EXTRASYSTOLES [None]
